FAERS Safety Report 11097130 (Version 1)
Quarter: 2015Q2

REPORT INFORMATION
  Report Type: Spontaneous
  Country: US (occurrence: None)
  Receive Date: 20150506
  Receipt Date: 20150506
  Transmission Date: 20150821
  Serious: Yes (Other)
  Sender: FDA-Public Use
  Company Number: None

PATIENT
  Age: 65 Year
  Sex: Male

DRUGS (1)
  1. VEMURAFENIB [Suspect]
     Active Substance: VEMURAFENIB

REACTIONS (3)
  - Hyperkeratosis [None]
  - Squamous cell carcinoma [None]
  - Malignant neoplasm of conjunctiva [None]

NARRATIVE: CASE EVENT DATE: 20150415
